FAERS Safety Report 16544415 (Version 4)
Quarter: 2020Q1

REPORT INFORMATION
  Report Type: Spontaneous
  Country: US (occurrence: US)
  Receive Date: 20190709
  Receipt Date: 20200213
  Transmission Date: 20200409
  Serious: No
  Sender: FDA-Public Use
  Company Number: US-PFIZER INC-2019269879

PATIENT
  Age: 63 Year
  Sex: Male
  Weight: 71.67 kg

DRUGS (15)
  1. RAPAMUNE [Suspect]
     Active Substance: SIROLIMUS
     Indication: HEART TRANSPLANT
     Dosage: 1 MG, DAILY
     Route: 048
     Dates: start: 20190409
  2. RAPAMUNE [Suspect]
     Active Substance: SIROLIMUS
     Dosage: 4 DF, 1X/DAY
     Route: 048
     Dates: start: 201906
  3. CALCIFEROL [Concomitant]
     Indication: CARDIOVASCULAR DISORDER
     Dosage: 0.25 MG, DAILY
  4. RAPAMUNE [Suspect]
     Active Substance: SIROLIMUS
     Dosage: 1 MG, DAILY
     Route: 048
  5. BACTRIM DS [Concomitant]
     Active Substance: SULFAMETHOXAZOLE\TRIMETHOPRIM
     Indication: PROPHYLAXIS
     Dosage: UNK (MWF (MONDAY, WEDNESDAY, FRIDAY))
  6. ALLOPURINOL. [Concomitant]
     Active Substance: ALLOPURINOL
     Indication: GOUT
     Dosage: UNK UNK, DAILY (300MG- 1/2 QD (EVERY DAY), )
  7. FINASTERIDE. [Concomitant]
     Active Substance: FINASTERIDE
     Indication: BENIGN PROSTATIC HYPERPLASIA
     Dosage: 5 MG, DAILY
  8. PREDNISONE. [Concomitant]
     Active Substance: PREDNISONE
     Dosage: 7.5 MG, DAILY
  9. FLOMAX [Concomitant]
     Active Substance: TAMSULOSIN HYDROCHLORIDE
     Indication: BENIGN PROSTATIC HYPERPLASIA
     Dosage: UNK UNK, DAILYQD (EVERY DAY)-
  10. METOLAZONE. [Concomitant]
     Active Substance: METOLAZONE
     Indication: SWELLING
     Dosage: 5 MG, AS NEEDED
  11. RAPAMUNE [Suspect]
     Active Substance: SIROLIMUS
     Dosage: 2 MG, DAILY
     Route: 048
     Dates: start: 20190710
  12. PRAVASTATIN. [Concomitant]
     Active Substance: PRAVASTATIN
     Indication: BLOOD CHOLESTEROL
     Dosage: 2 MG, DAILY 2MG QD (EVERY DAY)-
  13. TORSEMIDE. [Concomitant]
     Active Substance: TORSEMIDE
     Indication: SWELLING
     Dosage: 20 MG, AS NEEDED 20MG, 2-3 BID (TWICE DAILY) PRN (AS NEEDED)
  14. SERTRALINE [Concomitant]
     Active Substance: SERTRALINE HYDROCHLORIDE
     Dosage: 50 MG, DAILY QD (EVERY DAY)
  15. TACROLIMUS. [Concomitant]
     Active Substance: TACROLIMUS
     Dosage: 1 MG, 2X/DAY

REACTIONS (5)
  - Skin lesion [Unknown]
  - Drug level below therapeutic [Unknown]
  - Off label use [Unknown]
  - Product use in unapproved indication [Unknown]
  - Rash [Recovered/Resolved]

NARRATIVE: CASE EVENT DATE: 20190710
